FAERS Safety Report 6746445-6 (Version None)
Quarter: 2010Q2

REPORT INFORMATION
  Report Type: 
  Country: None (occurrence: None)
  Receive Date: 20100528
  Receipt Date: 20100519
  Transmission Date: 20101027
  Serious: Yes (Other)
  Sender: FDA-Public Use
  Company Number: BR-ROCHE-704502

PATIENT
  Sex: Female

DRUGS (2)
  1. BONIVA [Suspect]
     Indication: DRUG USE FOR UNKNOWN INDICATION
     Route: 048
  2. BONIVA [Suspect]
     Route: 048

REACTIONS (4)
  - MALAISE [None]
  - OSTEOARTHRITIS [None]
  - PULMONARY EMBOLISM [None]
  - THROMBOSIS [None]
